FAERS Safety Report 4433395-3 (Version None)
Quarter: 2004Q3

REPORT INFORMATION
  Report Type: 
  Country: None (occurrence: None)
  Receive Date: 20040824
  Receipt Date: 20040811
  Transmission Date: 20050211
  Serious: Yes (Life-Threatening, Hospitalization)
  Sender: FDA-Public Use
  Company Number: JP-JNJFOC-20040701932

PATIENT
  Age: 59 Year
  Sex: Female
  Weight: 64 kg

DRUGS (2)
  1. REMICADE [Suspect]
     Indication: RHEUMATOID ARTHRITIS
     Dosage: HAS RECEIVED 6 INFUSIONS
     Route: 042
     Dates: start: 20030918
  2. RHEUMATREX [Suspect]
     Indication: RHEUMATOID ARTHRITIS
     Dosage: 6 MG, 1 IN 1 WEEK
     Dates: start: 20040401, end: 20040613

REACTIONS (4)
  - C-REACTIVE PROTEIN INCREASED [None]
  - HODGKIN'S DISEASE [None]
  - PYREXIA [None]
  - WHITE BLOOD CELL COUNT DECREASED [None]
